FAERS Safety Report 8806414 (Version 3)
Quarter: 2013Q1

REPORT INFORMATION
  Report Type: Report from Study
  Country: US (occurrence: US)
  Receive Date: 20120925
  Receipt Date: 20130111
  Transmission Date: 20140127
  Serious: Yes (Death, Hospitalization)
  Sender: FDA-Public Use
  Company Number: US-SANOFI-AVENTIS-2012SA070027

PATIENT
  Age: 77 Year
  Sex: Male
  Weight: 73 kg

DRUGS (16)
  1. DOCETAXEL [Suspect]
     Indication: NON-SMALL CELL LUNG CANCER STAGE IV
     Route: 041
     Dates: start: 20120607, end: 20120607
  2. DOCETAXEL [Suspect]
     Indication: NON-SMALL CELL LUNG CANCER STAGE IV
     Route: 041
     Dates: start: 20120719, end: 20120719
  3. BLINDED THERAPY [Suspect]
     Indication: NON-SMALL CELL LUNG CANCER STAGE IV
     Route: 042
     Dates: start: 20120607, end: 20120607
  4. BLINDED THERAPY [Suspect]
     Indication: NON-SMALL CELL LUNG CANCER STAGE IV
     Route: 042
     Dates: start: 20120719, end: 20120719
  5. PANTOPRAZOLE [Concomitant]
     Dates: start: 20120607
  6. AMLODIPINE [Concomitant]
     Dates: start: 20120607
  7. LEVOTHYROXINE [Concomitant]
     Dates: start: 20120607
  8. PRO-AIR [Concomitant]
     Dates: start: 20120607
  9. SPIRIVA [Concomitant]
     Dates: start: 20120607
  10. ADVAIR [Concomitant]
     Dates: start: 20120607
  11. SINGULAIR [Concomitant]
     Dates: start: 20120614
  12. VICODIN [Concomitant]
     Dates: start: 20120607
  13. LASIX [Concomitant]
     Dates: start: 20120705
  14. PREDNISONE [Concomitant]
     Dates: start: 20120705
  15. DEXAMETHASONE [Concomitant]
     Dates: start: 20120531
  16. DIPHENHYDRAMINE [Concomitant]

REACTIONS (3)
  - Pulmonary haemorrhage [Fatal]
  - Rash [Not Recovered/Not Resolved]
  - Fatigue [Not Recovered/Not Resolved]
